FAERS Safety Report 12411727 (Version 6)
Quarter: 2016Q3

REPORT INFORMATION
  Report Type: Report from Study
  Country: US (occurrence: US)
  Receive Date: 20160527
  Receipt Date: 20160913
  Transmission Date: 20161109
  Serious: Yes (Death, Hospitalization, Other)
  Sender: FDA-Public Use
  Company Number: US-BAYER-2016-091251

PATIENT
  Age: 44 Year
  Sex: Male

DRUGS (3)
  1. STIVARGA [Suspect]
     Active Substance: REGORAFENIB
     Indication: ADENOCARCINOMA OF COLON
     Dosage: 120 MG, QD (DAILY)
     Route: 048
     Dates: end: 20160706
  2. STIVARGA [Suspect]
     Active Substance: REGORAFENIB
     Indication: METASTASES TO LIVER
     Dosage: 80 MG, QD
     Route: 048
     Dates: start: 20160516
  3. STIVARGA [Suspect]
     Active Substance: REGORAFENIB
     Indication: ADENOCARCINOMA OF COLON
     Dosage: 120 MG, QD
     Route: 048
     Dates: start: 20160504, end: 201605

REACTIONS (18)
  - Weight decreased [None]
  - Asthenia [None]
  - Abasia [None]
  - Cancer pain [None]
  - Death [Fatal]
  - Penile necrosis [None]
  - Failure to thrive [None]
  - Head injury [None]
  - Fatigue [Not Recovered/Not Resolved]
  - Ascites [None]
  - Hypophagia [None]
  - Fall [None]
  - Muscle spasms [None]
  - Dysphonia [None]
  - Oropharyngeal pain [None]
  - Drug ineffective [None]
  - Asthenia [None]
  - Blood pressure increased [None]

NARRATIVE: CASE EVENT DATE: 201605
